FAERS Safety Report 10378324 (Version 1)
Quarter: 2014Q3

REPORT INFORMATION
  Report Type: Spontaneous
  Country: US (occurrence: US)
  Receive Date: 20140812
  Receipt Date: 20140812
  Transmission Date: 20150326
  Serious: No
  Sender: FDA-Public Use
  Company Number: US-PFIZER INC-2014222983

PATIENT
  Age: 58 Year
  Sex: Male
  Weight: 64.4 kg

DRUGS (2)
  1. AVINZA [Suspect]
     Active Substance: MORPHINE SULFATE
     Dosage: 60 MG, 1X/DAY
     Route: 048
     Dates: start: 2006
  2. AVINZA [Suspect]
     Active Substance: MORPHINE SULFATE
     Dosage: 90 MG, 1X/DAY
     Route: 048

REACTIONS (1)
  - Drug effect incomplete [Unknown]
